FAERS Safety Report 8227596-6 (Version None)
Quarter: 2012Q1

REPORT INFORMATION
  Report Type: 
  Country: None (occurrence: None)
  Receive Date: 20120322
  Receipt Date: 20120319
  Transmission Date: 20120608
  Serious: Yes (Other)
  Sender: FDA-Public Use
  Company Number: BR-PFIZER INC-2012071868

PATIENT
  Age: 44 Year
  Sex: Male

DRUGS (3)
  1. VARENICLINE TARTRATE [Suspect]
     Dosage: UNK
     Route: 048
     Dates: start: 20120301, end: 20120301
  2. PONDERA [Concomitant]
     Indication: ANTIDEPRESSANT THERAPY
     Dosage: 20 MG, DAILY
     Dates: start: 20120301
  3. VARENICLINE TARTRATE [Suspect]
     Dosage: 1 MG, 2X/DAY
     Route: 048
     Dates: start: 20120301

REACTIONS (2)
  - NAUSEA [None]
  - HAEMORRHAGE URINARY TRACT [None]
